FAERS Safety Report 7301243-X (Version None)
Quarter: 2011Q1

REPORT INFORMATION
  Report Type: 
  Country: None (occurrence: None)
  Receive Date: 20110218
  Receipt Date: 20110216
  Transmission Date: 20110831
  Serious: Yes (Other)
  Sender: FDA-Public Use
  Company Number: IT-PFIZER INC-2011035057

PATIENT
  Age: 79 Year
  Sex: Male

DRUGS (7)
  1. AMLODIPINE [Concomitant]
     Dosage: 5MG/DAY
     Route: 048
  2. TRIATEC [Concomitant]
     Route: 048
  3. FLEXEN [Suspect]
     Indication: ARTHRALGIA
     Dosage: 200 MG, 1X/DAY
     Route: 048
     Dates: start: 20110113
  4. DEPO-MEDROL [Suspect]
     Indication: ARTHRALGIA
     Dosage: 40 MG AT EACH INJECTION
     Route: 030
     Dates: start: 20110114
  5. NIMESULIDE [Suspect]
     Indication: ARTHRALGIA
     Dosage: 100 MG, 1X/DAY
     Route: 048
     Dates: start: 20110104
  6. LASIX [Concomitant]
     Route: 048
  7. SINTROM [Suspect]
     Indication: ATRIAL FIBRILLATION
     Dosage: 9 MG, WEEKLY
     Route: 048
     Dates: start: 19980101

REACTIONS (1)
  - INTERNATIONAL NORMALISED RATIO INCREASED [None]
